FAERS Safety Report 17575825 (Version 2)
Quarter: 2020Q1

REPORT INFORMATION
  Report Type: Report from Study
  Country: IN (occurrence: IN)
  Receive Date: 20200324
  Receipt Date: 20200330
  Transmission Date: 20200409
  Serious: Yes (Death)
  Sender: FDA-Public Use
  Company Number: IN-PFIZER INC-2020119106

PATIENT
  Age: 24 Day
  Sex: Male

DRUGS (3)
  1. VINCRISTINE [Suspect]
     Active Substance: VINCRISTINE
     Indication: RETINOBLASTOMA
     Dosage: UNK, CYCLIC (INTERVALS OF 3 WEEKS FOR A TOTAL OF SIX CYCLES, FIVE DOSES)
     Route: 042
  2. ETOPOSIDE. [Suspect]
     Active Substance: ETOPOSIDE
     Indication: RETINOBLASTOMA
     Dosage: UNK, CYCLIC (INTERVALS OF 3 WEEKS FOR A TOTAL OF SIX CYCLES, FIVE DOSES)
     Route: 042
  3. CARBOPLATIN. [Suspect]
     Active Substance: CARBOPLATIN
     Indication: RETINOBLASTOMA
     Dosage: UNK, CYCLIC (INTERVALS OF 3 WEEKS FOR A TOTAL OF SIX CYCLES, FIVE DOSES)
     Route: 042

REACTIONS (2)
  - Neonatal pneumonia [Fatal]
  - Neutropenia [Fatal]
